FAERS Safety Report 25940339 (Version 3)
Quarter: 2025Q4

REPORT INFORMATION
  Report Type: Spontaneous
  Country: US (occurrence: US)
  Receive Date: 20251020
  Receipt Date: 20251124
  Transmission Date: 20260118
  Serious: Yes (Hospitalization)
  Sender: JOHNSON AND JOHNSON
  Company Number: US-JNJFOC-20251012827

PATIENT
  Sex: Male

DRUGS (1)
  1. CARVYKTI [Suspect]
     Active Substance: CILTACABTAGENE AUTOLEUCEL
     Indication: Product used for unknown indication
     Route: 065

REACTIONS (6)
  - Drainage [Unknown]
  - Transfusion [Unknown]
  - Platelet transfusion [Unknown]
  - Pyrexia [Unknown]
  - Asthenia [Recovering/Resolving]
  - Feeling cold [Unknown]
